FAERS Safety Report 4449246-7 (Version None)
Quarter: 2004Q3

REPORT INFORMATION
  Report Type: 
  Country: None (occurrence: None)
  Receive Date: 20040910
  Receipt Date: 20040831
  Transmission Date: 20050211
  Serious: Yes (Other)
  Sender: FDA-Public Use
  Company Number: 2004231073US

PATIENT
  Age: 59 Year
  Sex: Female

DRUGS (3)
  1. PROVERA [Suspect]
     Dates: start: 19900101, end: 19970201
  2. PREMARIN [Suspect]
     Dates: start: 19900101, end: 19970201
  3. PREMPRO [Suspect]
     Dates: start: 19970201, end: 20011101

REACTIONS (1)
  - BREAST CANCER FEMALE [None]
